FAERS Safety Report 7692071-4 (Version None)
Quarter: 2011Q3

REPORT INFORMATION
  Report Type: 
  Country: None (occurrence: None)
  Receive Date: 20110818
  Receipt Date: 20110809
  Transmission Date: 20111222
  Serious: Yes (Other)
  Sender: FDA-Public Use
  Company Number: PHHY2011GB71368

PATIENT
  Age: 53 Year
  Sex: Female
  Weight: 78 kg

DRUGS (5)
  1. ACETAMINOPHEN [Concomitant]
     Dosage: 1 G, TID
     Route: 048
     Dates: start: 20081021
  2. TOPIRAMATE [Suspect]
     Dosage: 25 MG, BID
     Route: 048
     Dates: start: 20100618
  3. PAROXETINE HCL [Concomitant]
     Dosage: 20 MG, UNK
     Route: 065
     Dates: start: 20091102
  4. TOLTERODINE TARTRATE [Concomitant]
     Dosage: 4 MG, UNK
     Route: 048
     Dates: start: 20090920
  5. LANSOPRAZOLE [Concomitant]
     Dosage: 30 MG, UNK
     Route: 048
     Dates: start: 19981219

REACTIONS (1)
  - TONGUE DISCOLOURATION [None]
